FAERS Safety Report 4404274-2 (Version None)
Quarter: 2004Q3

REPORT INFORMATION
  Report Type: 
  Country: None (occurrence: None)
  Receive Date: 20040721
  Receipt Date: 20040721
  Transmission Date: 20050211
  Serious: Yes (Hospitalization)
  Sender: FDA-Public Use
  Company Number: None

PATIENT
  Age: 47 Year
  Sex: Male
  Weight: 9138 kg

DRUGS (12)
  1. COUMADIN [Suspect]
     Dosage: 10 MG ORAL
     Route: 048
  2. ALBUTEROL SULFATE AND IPRATROPIUM BROMIDE [Concomitant]
  3. LANOXIN [Concomitant]
  4. TRAMADOL HCL [Concomitant]
  5. CELECOXIB [Concomitant]
  6. ACETAMINOPHEN [Concomitant]
  7. SPIRONOLACTONE [Concomitant]
  8. LISINOPRIL [Concomitant]
  9. QUETIAPINE FUMARATE [Concomitant]
  10. DM /GUAIFENESIN [Concomitant]
  11. LORATADINE [Concomitant]
  12. PHYTONADIONE [Concomitant]

REACTIONS (3)
  - EPISTAXIS [None]
  - GASTROINTESTINAL HAEMORRHAGE [None]
  - INTERNATIONAL NORMALISED RATIO INCREASED [None]
